FAERS Safety Report 6019898-9 (Version None)
Quarter: 2008Q4

REPORT INFORMATION
  Report Type: 
  Country: None (occurrence: None)
  Receive Date: 20081222
  Receipt Date: 20081209
  Transmission Date: 20090506
  Serious: Yes (Hospitalization)
  Sender: FDA-Public Use
  Company Number: 038023

PATIENT
  Age: 44 Year
  Sex: Male

DRUGS (3)
  1. WARFARIN SODIUM [Suspect]
     Dates: start: 20081113
  2. ENOXAPARIN SODIUM [Suspect]
     Indication: THROMBOSIS PROPHYLAXIS
     Dosage: 150 MG, QD, INJ
     Dates: start: 20081106, end: 20081101
  3. ENOXAPARIN SODIUM [Suspect]
     Indication: THROMBOSIS PROPHYLAXIS
     Dosage: INJ
     Dates: start: 20081119

REACTIONS (4)
  - ABDOMINAL PAIN [None]
  - IATROGENIC INJURY [None]
  - OPERATIVE HAEMORRHAGE [None]
  - SPLENIC HAEMORRHAGE [None]
